FAERS Safety Report 13218001 (Version 1)
Quarter: 2017Q1

REPORT INFORMATION
  Report Type: Spontaneous
  Country: US (occurrence: US)
  Receive Date: 20170210
  Receipt Date: 20170210
  Transmission Date: 20170428
  Serious: No
  Sender: FDA-Public Use
  Company Number: US-ACORDA-ACO_122404_2016

PATIENT
  Age: 46 Year
  Sex: Female

DRUGS (1)
  1. AMPYRA [Suspect]
     Active Substance: DALFAMPRIDINE
     Indication: PRODUCT USED FOR UNKNOWN INDICATION
     Route: 065

REACTIONS (13)
  - Central nervous system lesion [Unknown]
  - Pollakiuria [Unknown]
  - Vitamin D deficiency [Unknown]
  - Fatigue [Unknown]
  - Demyelination [Unknown]
  - Muscular weakness [Unknown]
  - Anaemia [Unknown]
  - Vision blurred [Unknown]
  - Vitamin B12 deficiency [Unknown]
  - Hypoaesthesia [Unknown]
  - Dysphagia [Unknown]
  - Asthenia [Unknown]
  - Urinary incontinence [Unknown]
